FAERS Safety Report 7735409-1 (Version None)
Quarter: 2011Q3

REPORT INFORMATION
  Report Type: 
  Country: None (occurrence: None)
  Receive Date: 20110907
  Receipt Date: 20110825
  Transmission Date: 20111222
  Serious: Yes (Other)
  Sender: FDA-Public Use
  Company Number: US-JNJFOC-20110812555

PATIENT
  Age: 49 Year
  Sex: Female
  Weight: 68.95 kg

DRUGS (8)
  1. ZYRTEC [Concomitant]
     Indication: MULTIPLE ALLERGIES
     Dosage: YRS
     Route: 065
  2. LORCET-HD [Concomitant]
     Indication: PAIN
     Dosage: 7.5/650 MG A DAY FOR 18 YEARS
     Route: 065
     Dates: start: 19930101
  3. RANITIDINE [Concomitant]
     Indication: DYSPEPSIA
     Dosage: YEARS
     Route: 065
  4. SOMA [Concomitant]
     Indication: MUSCLE RELAXANT THERAPY
     Route: 065
     Dates: start: 19930101
  5. FLONASE [Concomitant]
     Indication: MULTIPLE ALLERGIES
     Dosage: 2 SPRAYS DAILY
     Route: 065
     Dates: start: 20010101
  6. HYDROCHLOROTHIAZIDE [Concomitant]
     Indication: HYPERTENSION
     Route: 065
     Dates: start: 20110101
  7. PRECISE EXTRA STRENGTH PAIN RELIEVING CREAM [Suspect]
     Indication: SCIATICA
     Dosage: ONE TIME
     Route: 061
     Dates: start: 20110820, end: 20110821
  8. ADVAIR DISKUS 100/50 [Concomitant]
     Indication: ASTHMA
     Dosage: 250 MCG A DAY
     Route: 065
     Dates: start: 20010101

REACTIONS (5)
  - RASH PRURITIC [None]
  - OFF LABEL USE [None]
  - SLEEP DISORDER [None]
  - PAIN [None]
  - RASH VESICULAR [None]
